FAERS Safety Report 7414151-0 (Version None)
Quarter: 2011Q2

REPORT INFORMATION
  Report Type: 
  Country: None (occurrence: None)
  Receive Date: 20110414
  Receipt Date: 20110408
  Transmission Date: 20111010
  Serious: Yes (Hospitalization)
  Sender: FDA-Public Use
  Company Number: DK-PFIZER INC-2010130299

PATIENT
  Age: 68 Year
  Sex: Male
  Weight: 70 kg

DRUGS (17)
  1. CEFUROXIME [Concomitant]
     Indication: ENDOCARDITIS
     Dosage: 750 MG, 3X/DAY
  2. INSULATARD [Concomitant]
     Indication: DIABETES MELLITUS
     Dosage: 5 IU, 2X/DAY
  3. MEDILAX [Concomitant]
     Dosage: 667 MG/ML
     Route: 048
  4. TOLTERODINE TARTRATE [Concomitant]
     Indication: BLADDER DISORDER
     Dosage: 2.8 MILLIGRAM(S)
     Route: 048
  5. IMDUR [Concomitant]
     Indication: CARDIAC DISORDER
     Dosage: 60 MILLIGRAM(S)
     Route: 048
  6. PRASUGREL [Concomitant]
     Indication: CARDIAC DISORDER
     Dosage: 10 MG, 1X/DAY
     Route: 048
  7. ACETYLSALICYLIC ACID [Concomitant]
     Indication: CARDIAC DISORDER
     Dosage: 75 MG, 1X/DAY
  8. PANTOLOC ^NYCOMED^ [Concomitant]
     Indication: ABDOMINAL SYMPTOM
     Dosage: 40 MG, 1X/DAY
  9. AMLODIPINE [Concomitant]
     Indication: HYPERTENSION
     Dosage: 10 MG, 1X/DAY
     Route: 048
  10. CEFTRIAXONE SODIUM [Interacting]
     Indication: ENDOCARDITIS
     Dosage: 2 G, 1X/DAY
     Route: 042
     Dates: start: 20100914, end: 20100924
  11. THIAMINE HCL [Concomitant]
     Indication: VITAMIN SUPPLEMENTATION
     Dosage: 300 MG, 1X/DAY
  12. MYCOSTATIN [Concomitant]
     Dosage: 100000 INTERNATIONAL UNIT(S)/ML
     Route: 048
  13. TRADOLAN [Concomitant]
  14. ZARATOR [Suspect]
     Indication: HYPERCHOLESTEROLAEMIA
     Dosage: 80 MILLIGRAM(S)
     Route: 048
     Dates: start: 20100516, end: 20100924
  15. B-COMBIN [Concomitant]
     Indication: VITAMIN SUPPLEMENTATION
  16. SAROTEN [Concomitant]
     Indication: DEPRESSION
     Dosage: 10 MILLIGRAM(S)
     Route: 048
  17. PINEX [Concomitant]

REACTIONS (2)
  - DRUG INTERACTION [None]
  - RHABDOMYOLYSIS [None]
